FAERS Safety Report 11162967 (Version 8)
Quarter: 2018Q3

REPORT INFORMATION
  Report Type: Spontaneous
  Country: US (occurrence: US)
  Receive Date: 20150604
  Receipt Date: 20180927
  Transmission Date: 20181010
  Serious: Yes (Other)
  Sender: FDA-Public Use
  Company Number: US-SA-2015SA024828

PATIENT
  Age: 71 Year
  Sex: Male
  Weight: 158.75 kg

DRUGS (5)
  1. NOVOLOG [Concomitant]
     Active Substance: INSULIN ASPART
     Dosage: UNK
  2. LANTUS SOLOSTAR [Suspect]
     Active Substance: INSULIN GLARGINE
     Dosage: 34 U
     Route: 058
  3. LANTUS SOLOSTAR [Suspect]
     Active Substance: INSULIN GLARGINE
     Indication: TYPE 2 DIABETES MELLITUS
     Dosage: 38 DF,QD
     Route: 058
     Dates: start: 201501
  4. LANTUS SOLOSTAR [Suspect]
     Active Substance: INSULIN GLARGINE
     Dosage: 32 DF,BID
     Route: 058
     Dates: start: 201701
  5. CEFALEXIN [Concomitant]
     Active Substance: CEPHALEXIN
     Dosage: UNK UNK,UNK

REACTIONS (4)
  - Hip arthroplasty [Unknown]
  - Visual impairment [Unknown]
  - Injection site injury [Unknown]
  - Product use issue [Unknown]
